FAERS Safety Report 12256963 (Version 1)
Quarter: 2016Q2

REPORT INFORMATION
  Report Type: Spontaneous
  Country: None (occurrence: None)
  Receive Date: 20160411
  Receipt Date: 20160411
  Transmission Date: 20160815
  Serious: No
  Sender: FDA-Public Use
  Company Number: None

PATIENT

DRUGS (1)
  1. EPINEPHRINE, 4MG/250ML [Suspect]
     Active Substance: EPINEPHRINE

REACTIONS (2)
  - Product colour issue [None]
  - Product compounding quality issue [None]

NARRATIVE: CASE EVENT DATE: 20160408
